FAERS Safety Report 22292527 (Version 1)
Quarter: 2023Q2

REPORT INFORMATION
  Report Type: Spontaneous
  Country: KR (occurrence: KR)
  Receive Date: 20230508
  Receipt Date: 20230508
  Transmission Date: 20230722
  Serious: Yes (Other)
  Sender: FDA-Public Use
  Company Number: KR-ROCHE-3253525

PATIENT
  Age: 61 Year
  Sex: Female
  Weight: 50 kg

DRUGS (21)
  1. CAPECITABINE [Suspect]
     Active Substance: CAPECITABINE
     Indication: Neoplasm
     Dosage: 2300 MG, BID?DAILY DOSE: 4600 MILLIGRAM
     Route: 048
     Dates: start: 20170720
  2. CAPECITABINE [Suspect]
     Active Substance: CAPECITABINE
     Indication: Neoplasm
     Dosage: 2300 MG, BID, DATE OF MOST RECENT DOSE OF CAPECITABINE PRIOR TO AE ONSET 20/DEC/2022 AT 09.30
     Route: 048
     Dates: start: 20221220
  3. CAPECITABINE [Suspect]
     Active Substance: CAPECITABINE
     Indication: Neoplasm
     Dosage: CYLCE 95
     Route: 048
     Dates: start: 20221227
  4. CAPECITABINE [Suspect]
     Active Substance: CAPECITABINE
     Indication: Neoplasm
     Dosage: CYLCE 96
     Route: 048
     Dates: start: 20230119
  5. PERTUZUMAB [Suspect]
     Active Substance: PERTUZUMAB
     Indication: Neoplasm
     Dosage: 400 MILLIGRAM, EVERY 3 WEEKS
     Route: 042
     Dates: start: 20170720
  6. PERTUZUMAB [Suspect]
     Active Substance: PERTUZUMAB
     Indication: Neoplasm
     Dosage: DATE OF MOST RECENT DOSE OF PERTUZUMAB PRIOR TO AE ONSET 06/DEC/2022 AT 11.38
     Route: 042
     Dates: start: 20221206
  7. PERTUZUMAB [Suspect]
     Active Substance: PERTUZUMAB
     Indication: Neoplasm
     Dosage: CYCLE 95
     Route: 042
     Dates: start: 20221227
  8. PERTUZUMAB [Suspect]
     Active Substance: PERTUZUMAB
     Indication: Neoplasm
     Dosage: CYCLE 96
     Route: 042
     Dates: start: 20230119
  9. TRASTUZUMAB [Suspect]
     Active Substance: TRASTUZUMAB
     Indication: Neoplasm
     Dosage: 294 MG, EVERY 3 WEEKS
     Route: 042
     Dates: start: 20170720
  10. TRASTUZUMAB [Suspect]
     Active Substance: TRASTUZUMAB
     Indication: Neoplasm
     Dosage: 294 MG, EVERY 3 WEEKS, DATE OF MOST RECENT DOSE OF TRASTTUZUMAB PRIOR TO AE ONSET 06/DEC/2022 AT ...
     Route: 042
     Dates: start: 20221206
  11. TRASTUZUMAB [Suspect]
     Active Substance: TRASTUZUMAB
     Indication: Neoplasm
     Dosage: CYCLE 95
     Route: 042
     Dates: start: 20221227
  12. TRASTUZUMAB [Suspect]
     Active Substance: TRASTUZUMAB
     Indication: Neoplasm
     Dosage: CYCLE 96
     Route: 042
     Dates: start: 20230119
  13. CHLORPHENIRAMINE MALEATE [Concomitant]
     Active Substance: CHLORPHENIRAMINE MALEATE
     Route: 042
     Dates: start: 20170720
  14. ACETAMINOPHEN [Concomitant]
     Active Substance: ACETAMINOPHEN
     Route: 048
     Dates: start: 20170720
  15. ASTRAZENECA COVID-19 VACCINE [Concomitant]
     Active Substance: AZD-1222
  16. PFIZER-BIONTECH COVID-19 VACCINE [Concomitant]
     Active Substance: TOZINAMERAN
  17. AMBROXOL [Concomitant]
     Active Substance: AMBROXOL
  18. CEFAZOLIN [Concomitant]
     Active Substance: CEFAZOLIN
     Indication: Infection prophylaxis
  19. Greenplast Q [Concomitant]
  20. PLASMA SOLUTION A [Concomitant]
     Indication: Prophylaxis against dehydration
  21. TROLAC [Concomitant]
     Indication: Pain prophylaxis

REACTIONS (1)
  - Metastases to breast [Recovered/Resolved]

NARRATIVE: CASE EVENT DATE: 20221222
